FAERS Safety Report 20497613 (Version 1)
Quarter: 2022Q1

REPORT INFORMATION
  Report Type: Other
  Country: GB (occurrence: GB)
  Receive Date: 20220221
  Receipt Date: 20220221
  Transmission Date: 20220424
  Serious: Yes (Other)
  Sender: FDA-Public Use
  Company Number: None

PATIENT

DRUGS (3)
  1. LOPERAMIDE [Suspect]
     Active Substance: LOPERAMIDE
     Indication: Colon cancer
     Dosage: 4 DOSAGE FORM, BID (4 CAPSULES IN THE MORNING AND 4 AT NIGHT) (2 MG)
     Route: 065
     Dates: start: 201904
  2. LOPERAMIDE [Suspect]
     Active Substance: LOPERAMIDE
     Indication: Diarrhoea
     Dosage: 5 DOSAGE FORM, BID (5 DURING MORNING AND 5 AT NIGHT)
     Route: 065
  3. LOPERAMIDE [Suspect]
     Active Substance: LOPERAMIDE
     Dosage: UNK, (ANY EXTRA TO ENSURE A LOOSE BOWEL MOVEMENT, WHICH USUALLY AMOUNTED TO THREE EXTRA PER DAY)
     Route: 065

REACTIONS (7)
  - Dyspnoea [Unknown]
  - Heart rate irregular [Unknown]
  - Flatulence [Unknown]
  - Somnolence [Unknown]
  - Fatigue [Unknown]
  - Prescribed overdose [Unknown]
  - Off label use [Unknown]
